FAERS Safety Report 5730339-9 (Version None)
Quarter: 2008Q2

REPORT INFORMATION
  Report Type: 
  Country: None (occurrence: None)
  Receive Date: 20080502
  Receipt Date: 20080424
  Transmission Date: 20081010
  Serious: Yes (Death, Hospitalization)
  Sender: FDA-Public Use
  Company Number: GXKR2008GB03944

PATIENT
  Age: 80 Year
  Sex: Male

DRUGS (1)
  1. CO-AMOXICLAV (NGX)(AMOXICILLIN, CLAVULANATE) UNKNOWN [Suspect]

REACTIONS (5)
  - BIOPSY LIVER [None]
  - CARDIAC ARREST [None]
  - CHOLESTASIS [None]
  - HAEMORRHAGE [None]
  - JAUNDICE [None]
